FAERS Safety Report 23960192 (Version 1)
Quarter: 2024Q2

REPORT INFORMATION
  Report Type: Spontaneous
  Country: US (occurrence: US)
  Receive Date: 20240611
  Receipt Date: 20240611
  Transmission Date: 20240716
  Serious: Yes (Other)
  Sender: FDA-Public Use
  Company Number: US-MYLANLABS-2024M1052127

PATIENT
  Age: 7 Decade
  Sex: Male

DRUGS (13)
  1. GEMCITABINE [Suspect]
     Active Substance: GEMCITABINE
     Indication: Mesothelioma
     Dosage: UNK
     Route: 065
  2. GEMCITABINE [Suspect]
     Active Substance: GEMCITABINE
     Indication: Dedifferentiated liposarcoma
  3. GEMCITABINE [Suspect]
     Active Substance: GEMCITABINE
     Indication: Liposarcoma metastatic
  4. GEMCITABINE [Suspect]
     Active Substance: GEMCITABINE
     Indication: Malignant neoplasm of spermatic cord
  5. DOXORUBICIN [Suspect]
     Active Substance: DOXORUBICIN
     Indication: Dedifferentiated liposarcoma
     Dosage: UNK; AS PART OF AIM REGIMEN
     Route: 065
  6. DOXORUBICIN [Suspect]
     Active Substance: DOXORUBICIN
     Indication: Liposarcoma metastatic
  7. DOXORUBICIN [Suspect]
     Active Substance: DOXORUBICIN
     Indication: Malignant neoplasm of spermatic cord
  8. IFOSFAMIDE [Suspect]
     Active Substance: IFOSFAMIDE
     Indication: Dedifferentiated liposarcoma
     Dosage: UNK; AS PART OF AIM REGIMEN
     Route: 065
  9. IFOSFAMIDE [Suspect]
     Active Substance: IFOSFAMIDE
     Indication: Liposarcoma metastatic
  10. IFOSFAMIDE [Suspect]
     Active Substance: IFOSFAMIDE
     Indication: Malignant neoplasm of spermatic cord
  11. MESNA [Suspect]
     Active Substance: MESNA
     Indication: Dedifferentiated liposarcoma
     Dosage: UNK; AS PART OF AIM REGIMEN
     Route: 065
  12. MESNA [Suspect]
     Active Substance: MESNA
     Indication: Liposarcoma metastatic
  13. MESNA [Suspect]
     Active Substance: MESNA
     Indication: Malignant neoplasm of spermatic cord

REACTIONS (1)
  - Drug ineffective [Unknown]
